FAERS Safety Report 15592867 (Version 1)
Quarter: 2018Q4

REPORT INFORMATION
  Report Type: Report from Study
  Country: US (occurrence: US)
  Receive Date: 20181107
  Receipt Date: 20181107
  Transmission Date: 20190205
  Serious: Yes (Hospitalization)
  Sender: FDA-Public Use
  Company Number: PHHO2018US011874

PATIENT
  Sex: Female

DRUGS (5)
  1. PACLITAXEL. [Suspect]
     Active Substance: PACLITAXEL
     Indication: MALIGNANT PERITONEAL NEOPLASM
     Dosage: UNK
     Route: 042
     Dates: start: 20180828
  2. PACLITAXEL. [Suspect]
     Active Substance: PACLITAXEL
     Dosage: TOTAL DOSE ADMINISTERED THIS COURSE: 248 MG
     Route: 042
     Dates: start: 20181009, end: 20181016
  3. INC424A [Suspect]
     Active Substance: RUXOLITINIB
     Indication: MALIGNANT PERITONEAL NEOPLASM
     Dosage: TOTAL DOSE ADMINISTERED THIS COURSE: 435 MG
     Route: 048
     Dates: start: 20180828, end: 20181023
  4. CARBOPLATIN. [Suspect]
     Active Substance: CARBOPLATIN
     Dosage: TOTAL DOSE ADMINISTERED THIS COURSE: 515 MG;
     Route: 042
     Dates: start: 20181009
  5. CARBOPLATIN. [Suspect]
     Active Substance: CARBOPLATIN
     Indication: MALIGNANT PERITONEAL NEOPLASM
     Dosage: UNK
     Route: 042
     Dates: start: 20180828

REACTIONS (1)
  - Febrile neutropenia [Recovered/Resolved]

NARRATIVE: CASE EVENT DATE: 20181023
